FAERS Safety Report 9281780 (Version 3)
Quarter: 2013Q4

REPORT INFORMATION
  Report Type: Spontaneous
  Country: US (occurrence: US)
  Receive Date: 20130510
  Receipt Date: 20131008
  Transmission Date: 20140711
  Serious: Yes (Hospitalization)
  Sender: FDA-Public Use
  Company Number: US-B.I. PHARMACEUTICALS,INC./RIDGEFIELD-2013-BI-12871BP

PATIENT
  Age: 88 Year
  Sex: Male
  Weight: 83.91 kg

DRUGS (9)
  1. PRADAXA [Suspect]
     Indication: ANTICOAGULANT THERAPY
     Dosage: 300 MG
     Dates: start: 20110511, end: 20110630
  2. ALENDRONATE SODIUM [Concomitant]
     Dosage: 10 MG
     Dates: start: 2010, end: 2011
  3. AMLODIPINE BESYLATE [Concomitant]
     Dates: start: 2010, end: 2011
  4. CEPHALEXIN [Concomitant]
     Dates: start: 2010, end: 2011
  5. METOPROLOL TARTRATE [Concomitant]
     Dates: start: 201107, end: 201108
  6. ASPIRIN [Concomitant]
  7. LISINOPRIL [Concomitant]
     Dosage: 10 MG
     Dates: start: 201101, end: 201106
  8. VITAMIN B12 [Concomitant]
  9. LUPRON DEPOT [Concomitant]
     Dosage: 0.25 MG

REACTIONS (2)
  - Gastrointestinal haemorrhage [Unknown]
  - Anaemia [Unknown]
